FAERS Safety Report 25947814 (Version 1)
Quarter: 2025Q4

REPORT INFORMATION
  Report Type: Spontaneous
  Country: GB (occurrence: GB)
  Receive Date: 20251022
  Receipt Date: 20251022
  Transmission Date: 20260118
  Serious: Yes (Other)
  Sender: AUROBINDO
  Company Number: GB-MHRA-MED-202510161346597380-SFWQN

PATIENT
  Age: 79 Year

DRUGS (1)
  1. PREGABALIN [Suspect]
     Active Substance: PREGABALIN
     Indication: Product used for unknown indication
     Dosage: UNK
     Route: 065

REACTIONS (4)
  - Chest discomfort [Recovered/Resolved]
  - Tachycardia [Recovered/Resolved]
  - Anxiety [Recovered/Resolved]
  - Nightmare [Recovered/Resolved]
